FAERS Safety Report 24312222 (Version 2)
Quarter: 2024Q4

REPORT INFORMATION
  Report Type: Spontaneous
  Country: US (occurrence: US)
  Receive Date: 20240912
  Receipt Date: 20241007
  Transmission Date: 20250115
  Serious: No
  Sender: PFIZER
  Company Number: US-PFIZER INC-202400255036

PATIENT
  Age: 88 Year
  Sex: Female
  Weight: 81.633 kg

DRUGS (3)
  1. PAXLOVID [Suspect]
     Active Substance: NIRMATRELVIR\RITONAVIR
     Indication: COVID-19 treatment
     Dosage: [NIRMATRELVIR 300 MG]/[RITONAVIR 100 MG]; 2X/DAY
     Route: 048
     Dates: start: 20240901, end: 20240906
  2. MULTAQ [Concomitant]
     Active Substance: DRONEDARONE
     Indication: Heart rate irregular
     Dosage: 400 MG, 2X/DAY
  3. GABAPENTIN [Concomitant]
     Active Substance: GABAPENTIN
     Indication: Restless legs syndrome
     Dosage: 300 MG, BEDTIME(HOUR OF SLEEP)

REACTIONS (5)
  - Headache [Recovering/Resolving]
  - Upper respiratory tract congestion [Recovering/Resolving]
  - Fatigue [Recovering/Resolving]
  - Cough [Unknown]
  - Contraindicated product administered [Unknown]

NARRATIVE: CASE EVENT DATE: 20240101
